FAERS Safety Report 5072336-5 (Version None)
Quarter: 2006Q3

REPORT INFORMATION
  Report Type: 
  Country: None (occurrence: None)
  Receive Date: 20060807
  Receipt Date: 20060803
  Transmission Date: 20061208
  Serious: Yes (Hospitalization)
  Sender: FDA-Public Use
  Company Number: 2006CG01321

PATIENT
  Age: 52 Year
  Sex: Female

DRUGS (4)
  1. CRESTOR [Suspect]
     Route: 048
     Dates: end: 20060701
  2. LANTUS [Interacting]
     Route: 058
     Dates: start: 19920101, end: 20060701
  3. NOVORAPID [Interacting]
     Route: 058
     Dates: start: 19920101, end: 20060701
  4. GRAPEFRUIT [Interacting]
     Dates: start: 20060701, end: 20060701

REACTIONS (5)
  - FACIAL PALSY [None]
  - FOOD INTERACTION [None]
  - HYPOGLYCAEMIA [None]
  - MALAISE [None]
  - TRANSIENT ISCHAEMIC ATTACK [None]
